FAERS Safety Report 8376463-6 (Version None)
Quarter: 2012Q1

REPORT INFORMATION
  Report Type: 
  Country: None (occurrence: None)
  Receive Date: 20120323
  Receipt Date: 20110909
  Transmission Date: 20120608
  Serious: Yes (Other)
  Sender: FDA-Public Use
  Company Number: 163-21880-11081479

PATIENT
  Age: 78 Year
  Sex: Male

DRUGS (2)
  1. REVLIMID [Suspect]
     Indication: MYELODYSPLASTIC SYNDROME
     Dosage: 10;5 MG, 1 IN 1 D, PO
     Route: 048
     Dates: start: 20110801
  2. REVLIMID [Suspect]
     Indication: MYELODYSPLASTIC SYNDROME
     Dosage: 10;5 MG, 1 IN 1 D, PO
     Route: 048
     Dates: start: 20110801, end: 20110101

REACTIONS (5)
  - VISUAL ACUITY REDUCED [None]
  - ARTHRALGIA [None]
  - VISION BLURRED [None]
  - PHOTOSENSITIVITY REACTION [None]
  - LACRIMATION INCREASED [None]
